FAERS Safety Report 4317505-4 (Version None)
Quarter: 2004Q1

REPORT INFORMATION
  Report Type: 
  Country: None (occurrence: None)
  Receive Date: 20040312
  Receipt Date: 20040301
  Transmission Date: 20041129
  Serious: Yes (Hospitalization)
  Sender: FDA-Public Use
  Company Number: HQWYE457401MAR04

PATIENT
  Age: 76 Year
  Sex: Male

DRUGS (6)
  1. OROKEN (CEFIXIME, TABLET) [Suspect]
     Dosage: ORAL
     Route: 048
     Dates: start: 20040104, end: 20040109
  2. OFLOCET (OFLOXACIN, ) [Suspect]
     Dosage: 400 MG, ORAL
     Route: 048
     Dates: start: 20040104, end: 20040109
  3. LOVENOX [Concomitant]
  4. DAFLON (DIOSMIN) [Concomitant]
  5. FENOFIBRATE [Concomitant]
  6. ACETAMINOPHEN [Concomitant]

REACTIONS (6)
  - CYTOLYTIC HEPATITIS [None]
  - DIARRHOEA [None]
  - INFECTION [None]
  - LEUKOPENIA [None]
  - NEUTROPENIA [None]
  - STREPTOCOCCAL BACTERAEMIA [None]
